FAERS Safety Report 13741750 (Version 1)
Quarter: 2017Q3

REPORT INFORMATION
  Report Type: Spontaneous
  Country: CN (occurrence: CN)
  Receive Date: 20170711
  Receipt Date: 20170711
  Transmission Date: 20171127
  Serious: Yes (Other)
  Sender: FDA-Public Use
  Company Number: CN-PFIZER INC-2017295574

PATIENT
  Age: 91 Year
  Sex: Male
  Weight: 65 kg

DRUGS (4)
  1. SULPERAZON [Suspect]
     Active Substance: CEFOPERAZONE SODIUM\SULBACTAM SODIUM
     Indication: URINARY TRACT INFECTION
     Dosage: 3 G, 2X/DAY
     Route: 041
     Dates: start: 20170417, end: 20170428
  2. TYGACIL [Suspect]
     Active Substance: TIGECYCLINE
     Indication: URINARY TRACT INFECTION
     Dosage: 50 MG, 2X/DAY
     Route: 041
     Dates: start: 20170418, end: 20170501
  3. NORMAL SALINE [Concomitant]
     Active Substance: SODIUM CHLORIDE
     Dosage: 1000 ML, UNK
     Dates: start: 20170417
  4. NORMAL SALINE [Concomitant]
     Active Substance: SODIUM CHLORIDE
     Dosage: 50 ML, UNK
     Dates: start: 20170418

REACTIONS (3)
  - Blood bilirubin increased [Unknown]
  - Mental fatigue [Unknown]
  - Liver function test abnormal [Unknown]

NARRATIVE: CASE EVENT DATE: 20170501
